FAERS Safety Report 21404027 (Version 1)
Quarter: 2022Q4

REPORT INFORMATION
  Report Type: Spontaneous
  Country: US (occurrence: US)
  Receive Date: 20221003
  Receipt Date: 20221003
  Transmission Date: 20230112
  Serious: No
  Sender: FDA-Public Use
  Company Number: US-MYLANLABS-2022M1097208

PATIENT
  Sex: Male
  Weight: 140.61 kg

DRUGS (1)
  1. SEMGLEE (INSULIN GLARGINE-YFGN) [Suspect]
     Active Substance: INSULIN GLARGINE-YFGN
     Indication: Diabetes mellitus
     Dosage: 55 INTERNATIONAL UNIT, QD (ONCE A DAY)
     Route: 058

REACTIONS (2)
  - Device use issue [Unknown]
  - Device-device incompatibility [Unknown]
